FAERS Safety Report 8845928 (Version 1)
Quarter: 2012Q4

REPORT INFORMATION
  Report Type: 
  Country: BR (occurrence: BR)
  Receive Date: 20121017
  Receipt Date: 20121017
  Transmission Date: 20130627
  Serious: Yes (Hospitalization, Other)
  Sender: FDA-Public Use
  Company Number: BR-ASTRAZENECA-2012SE77216

PATIENT
  Age: 80 Year
  Sex: Male

DRUGS (4)
  1. ATACAND HCT [Suspect]
     Indication: HYPERTENSION
     Dosage: 8/12.5mg
     Route: 048
     Dates: start: 2007
  2. CARDIZEM [Concomitant]
     Indication: ARRHYTHMIA
     Dates: start: 2011
  3. ANCORON [Concomitant]
     Indication: ARRHYTHMIA
     Dates: start: 2011
  4. CLOPIDOGREL BISULFATE [Concomitant]
     Indication: ARRHYTHMIA
     Dates: start: 2011

REACTIONS (3)
  - Arrhythmia [Recovered/Resolved]
  - Diabetes mellitus [Unknown]
  - Blood cholesterol increased [Unknown]
